FAERS Safety Report 21654090 (Version 3)
Quarter: 2023Q1

REPORT INFORMATION
  Report Type: Spontaneous
  Country: DE (occurrence: DE)
  Receive Date: 20221129
  Receipt Date: 20230124
  Transmission Date: 20230418
  Serious: Yes (Hospitalization, Other)
  Sender: FDA-Public Use
  Company Number: DE-MYLANLABS-2022M1124272

PATIENT
  Age: 44 Year
  Sex: Male

DRUGS (10)
  1. IBUPROFEN [Suspect]
     Active Substance: IBUPROFEN
     Indication: Pain prophylaxis
     Dosage: 400 MILLIGRAM
     Route: 048
     Dates: start: 2022
  2. PANTOPRAZOLE [Suspect]
     Active Substance: PANTOPRAZOLE
     Indication: Prophylaxis against gastrointestinal ulcer
     Dosage: 40 MILLIGRAM
     Route: 048
     Dates: start: 2022, end: 20221029
  3. TAMSULOSIN [Suspect]
     Active Substance: TAMSULOSIN
     Indication: Benign prostatic hyperplasia
     Dosage: 0.4 MILLIGRAM
     Route: 048
     Dates: end: 20221029
  4. BRIVIACT [Suspect]
     Active Substance: BRIVARACETAM
     Indication: Symptomatic treatment
     Dosage: 50 MILLIGRAM
     Route: 065
     Dates: start: 202210, end: 20221029
  5. DEXAMETHASONE [Suspect]
     Active Substance: DEXAMETHASONE
     Indication: Prophylaxis
     Dosage: 2 MILLIGRAM
     Route: 065
     Dates: start: 202208
  6. PALBOCICLIB [Suspect]
     Active Substance: PALBOCICLIB
     Indication: Product used for unknown indication
     Dosage: 125 MILLIGRAM, CYCLE FOR 3 WEEKS
     Route: 048
     Dates: start: 20211201, end: 20220531
  7. PALBOCICLIB [Suspect]
     Active Substance: PALBOCICLIB
     Dosage: 125 MILLIGRAM, CYCLE FOR 3 WEEKS (1 DOSAGE FORM, (125 MG, CYCLIC) QD (FOR 3 WEEKS) )
     Route: 048
     Dates: start: 20220531
  8. BRIVIACT [Concomitant]
     Active Substance: BRIVARACETAM
     Indication: Symptomatic treatment
     Dosage: 50 MILLIGRAM
     Route: 065
     Dates: start: 202210, end: 20221029
  9. DEXAMETHASONE [Concomitant]
     Active Substance: DEXAMETHASONE
     Indication: Prophylaxis
     Dosage: 2 MILLIGRAM
     Route: 065
     Dates: start: 202208
  10. IBUPROFEN [Concomitant]
     Active Substance: IBUPROFEN
     Indication: Pain prophylaxis
     Dosage: 400 MILLIGRAM
     Route: 048
     Dates: start: 2022

REACTIONS (2)
  - Hydrocephalus [Not Recovered/Not Resolved]
  - Neoplasm progression [Unknown]

NARRATIVE: CASE EVENT DATE: 20221029
